FAERS Safety Report 24423321 (Version 2)
Quarter: 2024Q4

REPORT INFORMATION
  Report Type: Spontaneous
  Country: IL (occurrence: IL)
  Receive Date: 20241010
  Receipt Date: 20241024
  Transmission Date: 20250115
  Serious: Yes (Hospitalization)
  Sender: TEVA
  Company Number: IL-TEVA-VS-3250273

PATIENT
  Age: 3 Month
  Sex: Male

DRUGS (3)
  1. DOXORUBICIN [Suspect]
     Active Substance: DOXORUBICIN
     Indication: Soft tissue sarcoma
     Route: 065
  2. DOXORUBICIN [Suspect]
     Active Substance: DOXORUBICIN
     Indication: Soft tissue sarcoma
     Route: 065
  3. IFOSFAMIDE [Suspect]
     Active Substance: IFOSFAMIDE
     Indication: Soft tissue sarcoma
     Route: 065

REACTIONS (3)
  - Dysphonia [Unknown]
  - Febrile neutropenia [Unknown]
  - Dermatitis diaper [Unknown]
